FAERS Safety Report 23010866 (Version 3)
Quarter: 2024Q4

REPORT INFORMATION
  Report Type: Spontaneous
  Country: US (occurrence: US)
  Receive Date: 20230929
  Receipt Date: 20241218
  Transmission Date: 20250114
  Serious: No
  Sender: PFIZER
  Company Number: US-PFIZER INC-PV202300116737

PATIENT
  Age: 52 Year
  Sex: Female
  Weight: 71.655 kg

DRUGS (1)
  1. IBRANCE [Suspect]
     Active Substance: PALBOCICLIB
     Dosage: 75 MG, CYCLIC (FOR 21 DAYS ON AND 7 DAYS OFF)
     Route: 048

REACTIONS (1)
  - Skin exfoliation [Unknown]
